FAERS Safety Report 8762197 (Version 2)
Quarter: 2012Q4

REPORT INFORMATION
  Report Type: 
  Country: BR (occurrence: BR)
  Receive Date: 20120829
  Receipt Date: 20121127
  Transmission Date: 20130627
  Serious: Yes (Other)
  Sender: FDA-Public Use
  Company Number: BR-PFIZER INC-2012209852

PATIENT
  Age: 44 Year
  Sex: Female
  Weight: 49 kg

DRUGS (5)
  1. FRONTAL [Suspect]
     Indication: ANXIETY
     Dosage: UNK
     Route: 048
     Dates: start: 1997, end: 1997
  2. FRONTAL [Suspect]
     Dosage: 2 mg, 3x/day
     Route: 048
     Dates: start: 20120313
  3. AMYTRIL [Concomitant]
     Dosage: UNK
  4. STILNOX [Concomitant]
     Dosage: one tablet at night
  5. NEOZINE [Concomitant]
     Dosage: 4 drops

REACTIONS (4)
  - Cerebrospinal fistula [Recovering/Resolving]
  - Bacterial infection [Unknown]
  - Anxiety [Unknown]
  - Intentional drug misuse [Unknown]
